FAERS Safety Report 9264880 (Version 2)
Quarter: 2013Q2

REPORT INFORMATION
  Report Type: Report from Study
  Country: CA (occurrence: CA)
  Receive Date: 20130501
  Receipt Date: 20130510
  Transmission Date: 20140414
  Serious: Yes (Other)
  Sender: FDA-Public Use
  Company Number: PHHY2013CA042443

PATIENT
  Age: 52 Year
  Sex: Male

DRUGS (1)
  1. CLOZARIL [Suspect]
     Indication: SCHIZOPHRENIA
     Dosage: 700 MG, QHS
     Route: 048
     Dates: start: 20070109

REACTIONS (2)
  - Hepatitis A [Not Recovered/Not Resolved]
  - Hepatitis C [Not Recovered/Not Resolved]
